FAERS Safety Report 9618289 (Version 1)
Quarter: 2013Q4

REPORT INFORMATION
  Report Type: Spontaneous
  Country: US (occurrence: US)
  Receive Date: 20131014
  Receipt Date: 20131014
  Transmission Date: 20140711
  Serious: No
  Sender: FDA-Public Use
  Company Number: US-BIOGENIDEC-2013BI093462

PATIENT
  Age: 18 Year
  Sex: Female

DRUGS (2)
  1. AVONEX [Suspect]
     Indication: MULTIPLE SCLEROSIS
     Route: 030
     Dates: start: 20110621
  2. AVONEX [Suspect]
     Indication: MULTIPLE SCLEROSIS
     Route: 030
     Dates: start: 20130805

REACTIONS (6)
  - Underdose [Recovered/Resolved]
  - Stress [Not Recovered/Not Resolved]
  - Injection site extravasation [Not Recovered/Not Resolved]
  - Drug dose omission [Recovered/Resolved]
  - Exposure via direct contact [Recovered/Resolved]
  - Anxiety [Not Recovered/Not Resolved]
